FAERS Safety Report 7644501-1 (Version None)
Quarter: 2011Q3

REPORT INFORMATION
  Report Type: 
  Country: None (occurrence: None)
  Receive Date: 20110729
  Receipt Date: 20110721
  Transmission Date: 20111222
  Serious: Yes (Death)
  Sender: FDA-Public Use
  Company Number: CA-ROCHE-790910

PATIENT
  Age: 39 Year

DRUGS (12)
  1. FENTANYL CITRATE [Suspect]
     Route: 065
  2. QUETIAPINE [Concomitant]
     Route: 065
  3. OXAZEPAM [Suspect]
     Route: 065
  4. RYTHMOL [Concomitant]
     Route: 065
  5. DIAZEPAM [Suspect]
     Route: 065
  6. DOXEPIN HYDROCHLORIDE [Suspect]
     Route: 065
  7. ATENOLOL [Concomitant]
     Route: 065
  8. ETHANOL [Concomitant]
     Route: 065
  9. EFFEXOR XR [Concomitant]
  10. SEROQUEL [Concomitant]
     Route: 065
  11. FENTANYL [Suspect]
     Route: 065
  12. VENLAFAXINE [Suspect]
     Route: 065

REACTIONS (1)
  - TOXICITY TO VARIOUS AGENTS [None]
